FAERS Safety Report 9656263 (Version 2)
Quarter: 2013Q4

REPORT INFORMATION
  Report Type: Spontaneous
  Country: AU (occurrence: AU)
  Receive Date: 20131030
  Receipt Date: 20131030
  Transmission Date: 20140711
  Serious: Yes (Hospitalization)
  Sender: FDA-Public Use
  Company Number: AU-ACTELION-A-CH2013-88504

PATIENT
  Age: 12 Year
  Sex: Female
  Weight: 43 kg

DRUGS (2)
  1. TRACLEER [Suspect]
     Indication: PULMONARY ARTERIAL HYPERTENSION
     Dosage: 125 MG, BID
     Route: 048
     Dates: start: 201302
  2. TRACLEER [Suspect]
     Dosage: 62.5 MG, BID
     Route: 048
     Dates: start: 201103

REACTIONS (9)
  - Pulmonary arterial hypertension [Not Recovered/Not Resolved]
  - Disease progression [Not Recovered/Not Resolved]
  - Syncope [Not Recovered/Not Resolved]
  - Exercise tolerance decreased [Not Recovered/Not Resolved]
  - Cyanosis [Not Recovered/Not Resolved]
  - Dyspnoea exertional [Not Recovered/Not Resolved]
  - Right ventricular dysfunction [Not Recovered/Not Resolved]
  - Fibrin D dimer increased [Not Recovered/Not Resolved]
  - Pericardial effusion [Unknown]
